FAERS Safety Report 23618283 (Version 9)
Quarter: 2025Q4

REPORT INFORMATION
  Report Type: Spontaneous
  Country: US (occurrence: US)
  Receive Date: 20240311
  Receipt Date: 20251231
  Transmission Date: 20260117
  Serious: Yes (Other)
  Sender: SANOFI AVENTIS
  Company Number: US-SA-SAC20240305001229

PATIENT
  Age: 34 Year
  Sex: Female

DRUGS (5)
  1. DUPIXENT [Suspect]
     Active Substance: DUPILUMAB
     Indication: Chronic rhinosinusitis with nasal polyps
     Dosage: 300 MG, QOW
     Route: 058
     Dates: start: 20230724, end: 2023
  2. DUPIXENT [Suspect]
     Active Substance: DUPILUMAB
     Indication: Nasal polyps
     Dosage: 300 MG, QOW
     Route: 058
     Dates: start: 202308
  3. DUPIXENT [Suspect]
     Active Substance: DUPILUMAB
     Indication: Asthma
  4. TAMIFLU [Suspect]
     Active Substance: OSELTAMIVIR PHOSPHATE
     Indication: Influenza
     Dosage: UNK
     Dates: end: 2025
  5. TAMIFLU [Suspect]
     Active Substance: OSELTAMIVIR PHOSPHATE
     Indication: Influenza virus test positive

REACTIONS (31)
  - Choking [Unknown]
  - Influenza [Unknown]
  - Pain [Unknown]
  - Cough [Unknown]
  - Mucosal haemorrhage [Unknown]
  - Abdominal pain upper [Unknown]
  - Nasal congestion [Unknown]
  - Nasal obstruction [Unknown]
  - Anosmia [Unknown]
  - Rhinorrhoea [Unknown]
  - Gastrointestinal inflammation [Unknown]
  - Gastrooesophageal reflux disease [Unknown]
  - Facial pain [Unknown]
  - Eyelid rash [Recovered/Resolved]
  - Rash erythematous [Recovered/Resolved]
  - Eczema [Recovered/Resolved]
  - Pharyngeal disorder [Not Recovered/Not Resolved]
  - Dysphonia [Unknown]
  - Seasonal allergy [Unknown]
  - Erythema [Unknown]
  - Rhinalgia [Not Recovered/Not Resolved]
  - Head discomfort [Not Recovered/Not Resolved]
  - Oropharyngeal discomfort [Not Recovered/Not Resolved]
  - Nasal congestion [Not Recovered/Not Resolved]
  - Sinusitis [Recovered/Resolved]
  - Influenza virus test positive [Unknown]
  - Wheezing [Not Recovered/Not Resolved]
  - Therapeutic response unexpected [Unknown]
  - Hypersensitivity [Unknown]
  - Heart rate increased [Unknown]
  - Cough [Unknown]

NARRATIVE: CASE EVENT DATE: 20240101
